FAERS Safety Report 15178640 (Version 2)
Quarter: 2018Q3

REPORT INFORMATION
  Report Type: Spontaneous
  Country: US (occurrence: US)
  Receive Date: 20180722
  Receipt Date: 20180929
  Transmission Date: 20181010
  Serious: Yes (Other)
  Sender: FDA-Public Use
  Company Number: US-009507513-1807USA007050

PATIENT
  Sex: Female
  Weight: 165.3 kg

DRUGS (1)
  1. NEXPLANON [Suspect]
     Active Substance: ETONOGESTREL
     Dosage: 1 IMPLANT, LEFT ARM, NON?DOMINANT ARM
     Route: 058
     Dates: start: 201711, end: 20180712

REACTIONS (7)
  - Device deployment issue [Recovered/Resolved]
  - Suicidal ideation [Unknown]
  - Anxiety [Unknown]
  - Complication associated with device [Recovered/Resolved]
  - Depression [Unknown]
  - Feeling abnormal [Unknown]
  - Complication of device removal [Recovered/Resolved]

NARRATIVE: CASE EVENT DATE: 2017
